FAERS Safety Report 5588785-2 (Version None)
Quarter: 2008Q1

REPORT INFORMATION
  Report Type: 
  Country: None (occurrence: None)
  Receive Date: 20080111
  Receipt Date: 20080109
  Transmission Date: 20080703
  Serious: Yes (Hospitalization)
  Sender: FDA-Public Use
  Company Number: B0502303A

PATIENT
  Age: 83 Year
  Sex: Male

DRUGS (9)
  1. CLAMOXYL [Suspect]
     Route: 048
     Dates: start: 20071201, end: 20071204
  2. ZYLORIC [Suspect]
     Dosage: 200MG PER DAY
     Dates: start: 20071204
  3. PREVISCAN [Suspect]
     Indication: THROMBOSIS PROPHYLAXIS
     Dosage: 20MG PER DAY
     Route: 048
  4. PERSANTINE [Suspect]
     Dosage: 75MG FOUR TIMES PER DAY
     Route: 048
     Dates: start: 20071205
  5. ZOCOR [Suspect]
     Dosage: 40MG PER DAY
     Route: 048
     Dates: start: 20071205
  6. STILNOX [Concomitant]
     Dosage: 10MG PER DAY
     Route: 048
     Dates: start: 20071201, end: 20071205
  7. MEPRONIZINE [Concomitant]
     Route: 048
     Dates: start: 20071205
  8. APROVEL [Concomitant]
     Dosage: 150MG PER DAY
     Route: 048
     Dates: start: 20071202
  9. LASILIX [Concomitant]
     Dosage: 40MG PER DAY
     Route: 048
     Dates: start: 20071202

REACTIONS (3)
  - EPISTAXIS [None]
  - HAEMARTHROSIS [None]
  - STAPHYLOCOCCAL INFECTION [None]
